FAERS Safety Report 8425375-8 (Version None)
Quarter: 2012Q2

REPORT INFORMATION
  Report Type: 
  Country: None (occurrence: None)
  Receive Date: 20120604
  Receipt Date: 20120524
  Transmission Date: 20120825
  Serious: Yes (Other)
  Sender: FDA-Public Use
  Company Number: AUR-APL-2011-05754

PATIENT
  Age: 22 Year
  Sex: Male

DRUGS (5)
  1. ASPIRIN [Concomitant]
  2. LEVETIRACETAM [Suspect]
     Indication: PARTIAL SEIZURES
     Dosage: 1000 MG (500 MG, 2 IN 1 D),ORAL
     Route: 048
     Dates: start: 20080213
  3. ALENDRONATE SODIUM [Concomitant]
  4. VITAMIN D [Concomitant]
  5. CALCIUM CARBONATE [Concomitant]

REACTIONS (2)
  - ARTHRALGIA [None]
  - BONE INFARCTION [None]
